FAERS Safety Report 9716056 (Version 1)
Quarter: 2013Q4

REPORT INFORMATION
  Report Type: Spontaneous
  Country: US (occurrence: None)
  Receive Date: 20131126
  Receipt Date: 20131126
  Transmission Date: 20140711
  Serious: Yes (Hospitalization)
  Sender: FDA-Public Use
  Company Number: None

PATIENT
  Age: 85 Year
  Sex: Male
  Weight: 99.3 kg

DRUGS (1)
  1. VANCOMYCIN [Suspect]
     Indication: PNEUMONIA
     Route: 042
     Dates: start: 20131111, end: 20131116

REACTIONS (3)
  - Hypotension [None]
  - Renal tubular necrosis [None]
  - Drug level above therapeutic [None]
